FAERS Safety Report 19185904 (Version 3)
Quarter: 2021Q2

REPORT INFORMATION
  Report Type: Spontaneous
  Country: JP (occurrence: JP)
  Receive Date: 20210427
  Receipt Date: 20210527
  Transmission Date: 20210717
  Serious: Yes (Hospitalization)
  Sender: FDA-Public Use
  Company Number: JP-JNJFOC-20210447065

PATIENT
  Age: 65 Year
  Sex: Female
  Weight: 36 kg

DRUGS (3)
  1. PREDNISOLONE. [Suspect]
     Active Substance: PREDNISOLONE
     Indication: RHEUMATOID ARTHRITIS
     Route: 048
     Dates: end: 20161111
  2. SIMPONI [Suspect]
     Active Substance: GOLIMUMAB
     Indication: RHEUMATOID ARTHRITIS
     Route: 058
     Dates: start: 201608, end: 20161020
  3. RHEUMATREX [Suspect]
     Active Substance: METHOTREXATE SODIUM
     Indication: RHEUMATOID ARTHRITIS
     Route: 048
     Dates: end: 20161020

REACTIONS (2)
  - Cryptococcosis [Recovered/Resolved]
  - Organising pneumonia [Recovered/Resolved]

NARRATIVE: CASE EVENT DATE: 20161020
